FAERS Safety Report 21813487 (Version 1)
Quarter: 2023Q1

REPORT INFORMATION
  Report Type: Spontaneous
  Country: US (occurrence: US)
  Receive Date: 20230103
  Receipt Date: 20230103
  Transmission Date: 20230417
  Serious: No
  Sender: FDA-Public Use
  Company Number: US-BIOVITRUM-2023US00109

PATIENT
  Sex: Female
  Weight: 9 kg

DRUGS (5)
  1. SYNAGIS [Suspect]
     Active Substance: PALIVIZUMAB
     Indication: Atrioventricular septal defect
  2. SYNAGIS [Suspect]
     Active Substance: PALIVIZUMAB
     Indication: Pulmonary hypertension
  3. SYNAGIS [Suspect]
     Active Substance: PALIVIZUMAB
     Indication: Obstructive sleep apnoea syndrome
  4. SYNAGIS [Suspect]
     Active Substance: PALIVIZUMAB
     Indication: Trisomy 21
  5. SYNAGIS [Suspect]
     Active Substance: PALIVIZUMAB
     Indication: Aortic valve incompetence

REACTIONS (1)
  - Adverse reaction [Unknown]
